FAERS Safety Report 4468875-8 (Version None)
Quarter: 2004Q4

REPORT INFORMATION
  Report Type: 
  Country: None (occurrence: None)
  Receive Date: 20041008
  Receipt Date: 20040930
  Transmission Date: 20050328
  Serious: Yes (Hospitalization)
  Sender: FDA-Public Use
  Company Number: US-JNJFOC-20041000380

PATIENT
  Sex: Female
  Weight: 58.97 kg

DRUGS (16)
  1. INFLIXIMAB [Suspect]
     Indication: RHEUMATOID ARTHRITIS
     Route: 042
  2. ARAVA [Concomitant]
  3. ESTRADIOL [Concomitant]
  4. FOLIC ACID [Concomitant]
  5. TRIAM/HCTZ [Concomitant]
     Dosage: 75/50 MG
  6. KLOR-CON [Concomitant]
  7. PROMETHAZINE [Concomitant]
  8. NIFEDIPINE [Concomitant]
  9. MULTI-VITAMIN [Concomitant]
  10. MULTI-VITAMIN [Concomitant]
  11. MULTI-VITAMIN [Concomitant]
  12. MULTI-VITAMIN [Concomitant]
  13. MULTI-VITAMIN [Concomitant]
  14. MULTI-VITAMIN [Concomitant]
  15. MULTI-VITAMIN [Concomitant]
  16. MULTI-VITAMIN [Concomitant]

REACTIONS (1)
  - MENIERE'S DISEASE [None]
